FAERS Safety Report 8815500 (Version 3)
Quarter: 2013Q1

REPORT INFORMATION
  Report Type: Spontaneous
  Country: SE (occurrence: SE)
  Receive Date: 20120928
  Receipt Date: 20130306
  Transmission Date: 20140127
  Serious: Yes (Hospitalization)
  Sender: FDA-Public Use
  Company Number: SE-GLAXOSMITHKLINE-B0833646A

PATIENT
  Age: 68 Year
  Sex: Female

DRUGS (8)
  1. AVAMYS [Suspect]
     Indication: RHINITIS
     Dosage: 1SPR TWICE PER DAY
     Route: 065
     Dates: start: 2010, end: 201301
  2. LYRICA [Concomitant]
     Dosage: 100MG PER DAY
     Route: 065
  3. ALVEDON [Concomitant]
     Dosage: 1G FOUR TIMES PER DAY
     Route: 065
  4. IMOVANE [Concomitant]
     Route: 065
  5. NORSPAN [Concomitant]
     Route: 062
  6. DIGOXIN [Concomitant]
     Route: 065
  7. PROPAVAN [Concomitant]
     Route: 065
  8. ANTIBIOTICS [Concomitant]
     Route: 065

REACTIONS (25)
  - Cushing^s syndrome [Unknown]
  - Adrenal suppression [Unknown]
  - Hypertension [Not Recovered/Not Resolved]
  - Stress [Unknown]
  - Fatigue [Unknown]
  - Anxiety [Unknown]
  - Chest discomfort [Unknown]
  - Musculoskeletal discomfort [Unknown]
  - Heart rate decreased [Unknown]
  - Polyuria [Unknown]
  - Flushing [Unknown]
  - Swelling face [Unknown]
  - Skin wrinkling [Unknown]
  - Fatigue [Unknown]
  - Sleep disorder [Unknown]
  - Muscular weakness [Unknown]
  - Muscular weakness [Unknown]
  - Arrhythmia [Not Recovered/Not Resolved]
  - Retinal injury [Not Recovered/Not Resolved]
  - Renal injury [Not Recovered/Not Resolved]
  - Psoriasis [Unknown]
  - Skin infection [Unknown]
  - Skin disorder [Not Recovered/Not Resolved]
  - Renal disorder [Not Recovered/Not Resolved]
  - Retinal disorder [Not Recovered/Not Resolved]
